FAERS Safety Report 13673105 (Version 3)
Quarter: 2017Q3

REPORT INFORMATION
  Report Type: Spontaneous
  Country: JP (occurrence: JP)
  Receive Date: 20170621
  Receipt Date: 20170803
  Transmission Date: 20171127
  Serious: No
  Sender: FDA-Public Use
  Company Number: JP-ORION CORPORATION ORION PHARMA-ENT 2017-0099

PATIENT
  Age: 64 Year
  Sex: Female

DRUGS (10)
  1. BI-SIFROL [Suspect]
     Active Substance: PRAMIPEXOLE
     Route: 065
  2. MENESIT [Concomitant]
     Active Substance: CARBIDOPA\LEVODOPA
     Route: 065
  3. MENESIT [Concomitant]
     Active Substance: CARBIDOPA\LEVODOPA
     Dosage: DOSE INCREASED
     Route: 065
  4. FP [Concomitant]
     Active Substance: SELEGILINE HYDROCHLORIDE
     Route: 065
  5. COMTAN [Suspect]
     Active Substance: ENTACAPONE
     Indication: PARKINSON^S DISEASE
     Route: 048
  6. COMTAN [Suspect]
     Active Substance: ENTACAPONE
     Route: 048
  7. MIRAPEX [Concomitant]
     Active Substance: PRAMIPEXOLE DIHYDROCHLORIDE
     Route: 065
  8. BI-SIFROL [Suspect]
     Active Substance: PRAMIPEXOLE
     Indication: PARKINSON^S DISEASE
     Route: 065
  9. BI-SIFROL [Suspect]
     Active Substance: PRAMIPEXOLE
     Route: 065
  10. TRERIEF [Concomitant]
     Active Substance: ZONISAMIDE
     Route: 065

REACTIONS (15)
  - Dependence [Recovering/Resolving]
  - Insomnia [Recovering/Resolving]
  - Palpitations [Recovering/Resolving]
  - Depressed mood [Recovering/Resolving]
  - Irritability [Recovering/Resolving]
  - Hyperhidrosis [Recovering/Resolving]
  - Psychiatric symptom [Unknown]
  - Impulse-control disorder [Recovering/Resolving]
  - Drug withdrawal syndrome [Recovering/Resolving]
  - Hallucination, visual [Unknown]
  - Motor dysfunction [Unknown]
  - Apathy [Recovering/Resolving]
  - Decreased appetite [Recovering/Resolving]
  - Compulsive shopping [Unknown]
  - Anxiety [Unknown]
